FAERS Safety Report 8804204 (Version 3)
Quarter: 2013Q2

REPORT INFORMATION
  Report Type: Report from Study
  Country: US (occurrence: US)
  Receive Date: 20120924
  Receipt Date: 20130409
  Transmission Date: 20140414
  Serious: Yes (Hospitalization)
  Sender: FDA-Public Use
  Company Number: US-SANOFI-AVENTIS-2012SA068056

PATIENT
  Age: 62 Year
  Sex: Male
  Weight: 70.75 kg

DRUGS (19)
  1. DOCETAXEL [Suspect]
     Indication: NON-SMALL CELL LUNG CANCER STAGE IV
     Dosage: EVERY THREE WEEKS (DAY 1 OF 21 DAY CYCLE)
     Route: 041
     Dates: start: 20120220, end: 20120220
  2. DOCETAXEL [Suspect]
     Indication: NON-SMALL CELL LUNG CANCER STAGE IV
     Dosage: EVERY THREE WEEKS (DAY 1 OF 21 DAY CYCLE)
     Route: 041
     Dates: start: 20120821, end: 20120821
  3. INVESTIGATIONAL DRUG [Suspect]
     Indication: NON-SMALL CELL LUNG CANCER STAGE IV
     Dosage: IV OVER 60 MINUTES EVERY THREE WEEKS (DAY 1 OF 21 DAY CYCLE)
     Route: 041
     Dates: start: 20120220, end: 20120220
  4. INVESTIGATIONAL DRUG [Suspect]
     Indication: NON-SMALL CELL LUNG CANCER STAGE IV
     Dosage: IV OVER 60 MINUTES EVERY THREE WEEKS (DAY 1 OF 21 DAY CYCLE)
     Route: 041
     Dates: start: 20120821, end: 20120821
  5. VENTOLIN /00139501/ [Concomitant]
  6. DUONEB [Concomitant]
  7. NYSTATIN [Concomitant]
     Indication: STOMATITIS
     Dates: start: 20111024
  8. IMODIUM A-D [Concomitant]
     Dates: start: 20120820
  9. AUGMENTIN [Concomitant]
     Dates: start: 20120820
  10. DECADRON /CAN/ [Concomitant]
     Dates: start: 20110510
  11. ALPRAZOLAM [Concomitant]
     Indication: ANXIETY
     Dates: start: 20120621
  12. CYPROHEPTADINE [Concomitant]
     Dates: start: 20110421
  13. MORPHINE SULFATE [Concomitant]
     Indication: BONE PAIN
     Dates: start: 20110602
  14. OMEPRAZOLE [Concomitant]
     Indication: GASTROOESOPHAGEAL REFLUX DISEASE
     Dates: start: 20110730
  15. ZOFRAN [Concomitant]
     Indication: PREMEDICATION
  16. PSEUDOEPHEDRINE HYDROCHLORIDE/DIPHENHYDRAMINE HYDROCHLORIDE/PARACETAMOL [Concomitant]
     Indication: PREMEDICATION
  17. SOLUMEDROL [Concomitant]
     Indication: PREMEDICATION
  18. PEPCID [Concomitant]
     Indication: PREMEDICATION
  19. EMEND [Concomitant]
     Indication: PREMEDICATION

REACTIONS (2)
  - Chronic obstructive pulmonary disease [Recovered/Resolved]
  - Anxiety [Recovered/Resolved]
